FAERS Safety Report 22893906 (Version 6)
Quarter: 2024Q1

REPORT INFORMATION
  Report Type: Spontaneous
  Country: US (occurrence: US)
  Receive Date: 20230901
  Receipt Date: 20240130
  Transmission Date: 20240409
  Serious: Yes (Hospitalization, Other)
  Sender: FDA-Public Use
  Company Number: US-BRISTOL-MYERS SQUIBB COMPANY-2023-121568

PATIENT
  Age: 67 Year
  Sex: Male
  Weight: 63.5 kg

DRUGS (3)
  1. LENALIDOMIDE [Suspect]
     Active Substance: LENALIDOMIDE
     Indication: Plasma cell myeloma
     Dosage: FREQUENCY: TAKE 1 CAPSULE BY MOUTH EVERY DAY FOR 21 DAYS ON THEN 7 DAYS OFF
     Route: 048
  2. LENALIDOMIDE [Suspect]
     Active Substance: LENALIDOMIDE
     Dosage: TAKE 1 CAPSULE (10MG TOTAL) BY MOUTH EVERY DAY FOR 21 DAYS, OFF 7 DAYS
     Route: 048
     Dates: start: 20230721
  3. LENALIDOMIDE [Suspect]
     Active Substance: LENALIDOMIDE
     Dosage: TAKE 1 CAPSULE (10MG TOTAL) BY MOUTH EVERY DAY FOR 21 DAYS, OFF 7 DAYS
     Route: 048

REACTIONS (12)
  - Urinary tract infection [Recovering/Resolving]
  - Sepsis [Recovered/Resolved]
  - Weight decreased [Recovered/Resolved]
  - Pneumonia [Recovering/Resolving]
  - Peripheral swelling [Not Recovered/Not Resolved]
  - Eschar [Not Recovered/Not Resolved]
  - Oedema peripheral [Unknown]
  - Product dose omission issue [Recovered/Resolved]
  - Faeces hard [Unknown]
  - Seizure [Unknown]
  - Fatigue [Unknown]
  - Rash [Recovered/Resolved]

NARRATIVE: CASE EVENT DATE: 20231231
